FAERS Safety Report 4790063-6 (Version None)
Quarter: 2005Q4

REPORT INFORMATION
  Report Type: 
  Country: None (occurrence: None)
  Receive Date: 20051006
  Receipt Date: 20050925
  Transmission Date: 20060501
  Serious: Yes (Hospitalization)
  Sender: FDA-Public Use
  Company Number: DE-JNJFOC-20050906490

PATIENT
  Sex: Female

DRUGS (1)
  1. TOPAMAX [Suspect]
     Indication: MIGRAINE PROPHYLAXIS
     Route: 065

REACTIONS (3)
  - ABDOMINAL PAIN [None]
  - ELECTROCARDIOGRAM T WAVE INVERSION [None]
  - HYPOKALAEMIA [None]
